FAERS Safety Report 6856680-4 (Version None)
Quarter: 2010Q3

REPORT INFORMATION
  Report Type: 
  Country: None (occurrence: None)
  Receive Date: 20100716
  Receipt Date: 20100716
  Transmission Date: 20110219
  Serious: Yes (Life-Threatening)
  Sender: FDA-Public Use
  Company Number: None

PATIENT
  Age: 35 Year
  Sex: Female
  Weight: 59.8748 kg

DRUGS (1)
  1. PREFERA OB ONE 1 GEL TABLET ALAVEN [Suspect]
     Indication: VITAMIN SUPPLEMENTATION
     Dosage: 1 GEL TABLET QD PO
     Route: 048
     Dates: start: 20100503, end: 20100714

REACTIONS (5)
  - HYPERSENSITIVITY [None]
  - OBSTRUCTIVE AIRWAYS DISORDER [None]
  - PARAESTHESIA ORAL [None]
  - PRODUCT ODOUR ABNORMAL [None]
  - PRODUCT PACKAGING ISSUE [None]
